FAERS Safety Report 10025883 (Version 3)
Quarter: 2014Q3

REPORT INFORMATION
  Report Type: Spontaneous
  Country: GB (occurrence: GB)
  Receive Date: 20140320
  Receipt Date: 20140814
  Transmission Date: 20150326
  Serious: Yes (Death, Hospitalization)
  Sender: FDA-Public Use
  Company Number: GB-ACTAVISPR-2014-05505

PATIENT
  Age: 70 Year
  Sex: Male

DRUGS (3)
  1. DOCETAXEL ACTAVIS [Suspect]
     Active Substance: DOCETAXEL
     Indication: NON-SMALL CELL LUNG CANCER
     Dosage: 116 MG IN 250 ML SODIUM CHLORIDE 0.9%, TOTAL
     Route: 042
     Dates: start: 20140207, end: 20140207
  2. DEXAMETHASONE. [Concomitant]
     Active Substance: DEXAMETHASONE
     Indication: NON-SMALL CELL LUNG CANCER
     Dosage: 8 MG, BID FOR 3 DAYS STARTING THE DAY BEFORE DOCETAXEL
     Route: 048
  3. METOCLOPRAMIDE. [Concomitant]
     Active Substance: METOCLOPRAMIDE
     Indication: NON-SMALL CELL LUNG CANCER
     Dosage: 10 MG, TID DAY 2 TO 4
     Route: 048

REACTIONS (5)
  - Pneumonia [Fatal]
  - Anaphylactoid reaction [Unknown]
  - Rash [Unknown]
  - Dyspnoea [Unknown]
  - Chest discomfort [Unknown]

NARRATIVE: CASE EVENT DATE: 20140207
